FAERS Safety Report 5820104-6 (Version None)
Quarter: 2008Q3

REPORT INFORMATION
  Report Type: 
  Country: None (occurrence: None)
  Receive Date: 20080724
  Receipt Date: 20080721
  Transmission Date: 20090109
  Serious: Yes (Death)
  Sender: FDA-Public Use
  Company Number: BR-ASTRAZENECA-2008UW14285

PATIENT
  Age: 82 Year
  Sex: Male

DRUGS (4)
  1. OMEPRAZOLE [Suspect]
     Indication: ULCER
     Dosage: DAILY
     Route: 048
     Dates: start: 20040101
  2. EBIX [Concomitant]
     Indication: DEMENTIA ALZHEIMER'S TYPE
     Route: 048
     Dates: start: 20010101
  3. ANTI-HYPERTENSIVE [Concomitant]
     Indication: HYPERTENSION
     Route: 048
     Dates: start: 20010101
  4. UNSPECIFIED [Concomitant]
     Indication: INSOMNIA
     Route: 048
     Dates: start: 20010101

REACTIONS (1)
  - CEREBROVASCULAR ACCIDENT [None]
